FAERS Safety Report 21950348 (Version 1)
Quarter: 2023Q1

REPORT INFORMATION
  Report Type: Spontaneous
  Country: US (occurrence: None)
  Receive Date: 20230202
  Receipt Date: 20230202
  Transmission Date: 20230417
  Serious: Yes (Death)
  Sender: FDA-Public Use
  Company Number: None

PATIENT
  Sex: Female

DRUGS (14)
  1. PROLIA [Suspect]
     Active Substance: DENOSUMAB
     Indication: Osteoporotic fracture
     Dosage: OTHER FREQUENCY : EVERY 6 MONTHS IN ;?
     Route: 058
     Dates: start: 20220202, end: 202208
  2. ASPIRIN [Concomitant]
     Active Substance: ASPIRIN
  3. AVAPRO [Concomitant]
     Active Substance: IRBESARTAN
  4. CARAFATE [Concomitant]
     Active Substance: SUCRALFATE
  5. CELLCEPT [Concomitant]
     Active Substance: MYCOPHENOLATE MOFETIL
  6. DAPSONE [Suspect]
     Active Substance: DAPSONE
  7. LASIX [Concomitant]
     Active Substance: FUROSEMIDE
  8. LIPITOR [Concomitant]
     Active Substance: ATORVASTATIN CALCIUM
  9. MAGNESIUM [Concomitant]
     Active Substance: MAGNESIUM
  10. NEURONTIN [Concomitant]
     Active Substance: GABAPENTIN
  11. PREDNISONE [Concomitant]
     Active Substance: PREDNISONE
  12. PROGRAF [Concomitant]
     Active Substance: TACROLIMUS
  13. QUINIDINE GL [Concomitant]
  14. SYNTHROID [Concomitant]
     Active Substance: LEVOTHYROXINE SODIUM

REACTIONS (1)
  - Death [None]
